FAERS Safety Report 4405067-2 (Version None)
Quarter: 2004Q2

REPORT INFORMATION
  Report Type: 
  Country: None (occurrence: None)
  Receive Date: 20040621
  Receipt Date: 20040517
  Transmission Date: 20050107
  Serious: No
  Sender: FDA-Public Use
  Company Number: A-US2003-02485

PATIENT
  Age: 55 Year
  Sex: Female

DRUGS (3)
  1. TRACLEER [Suspect]
     Indication: PULMONARY HYPERTENSION
     Dosage: SEE IMAGE
     Route: 048
  2. COUMADIN [Concomitant]
  3. . [Concomitant]

REACTIONS (3)
  - CONTUSION [None]
  - HOT FLUSH [None]
  - OEDEMA PERIPHERAL [None]
